APPROVED DRUG PRODUCT: KLEBCIL
Active Ingredient: KANAMYCIN SULFATE
Strength: EQ 500MG BASE/2ML
Dosage Form/Route: INJECTABLE;INJECTION
Application: A062170 | Product #002
Applicant: KING PHARMACEUTICALS INC
Approved: Approved Prior to Jan 1, 1982 | RLD: No | RS: No | Type: DISCN